FAERS Safety Report 5146260-3 (Version None)
Quarter: 2006Q4

REPORT INFORMATION
  Report Type: 
  Country: None (occurrence: None)
  Receive Date: 20061108
  Receipt Date: 20061025
  Transmission Date: 20070319
  Serious: Yes (Other)
  Sender: FDA-Public Use
  Company Number: GB-ELI_LILLY_AND_COMPANY-GB200610004379

PATIENT
  Age: 35 Year
  Sex: Male

DRUGS (2)
  1. CYMBALTA [Suspect]
     Indication: PERSONALITY DISORDER
     Dosage: 60 MG, UNK
  2. VENLAFAXIINE HCL [Concomitant]
     Indication: PERSONALITY DISORDER
     Dates: start: 20040101

REACTIONS (1)
  - HOMICIDE [None]
